FAERS Safety Report 10248702 (Version 1)
Quarter: 2014Q2

REPORT INFORMATION
  Report Type: Spontaneous
  Country: US (occurrence: None)
  Receive Date: 20140618
  Receipt Date: 20140618
  Transmission Date: 20141212
  Serious: Yes (Hospitalization)
  Sender: FDA-Public Use
  Company Number: None

PATIENT
  Age: 68 Year
  Sex: Male
  Weight: 117.7 kg

DRUGS (6)
  1. ENOXAPARIN [Suspect]
     Indication: DEEP VEIN THROMBOSIS
     Route: 058
     Dates: start: 20140410, end: 20140612
  2. ENOXAPARIN [Suspect]
     Indication: CEREBROVASCULAR ACCIDENT
     Route: 058
     Dates: start: 20140410, end: 20140612
  3. ENOXAPARIN [Suspect]
     Indication: DISEASE RECURRENCE
     Route: 058
     Dates: start: 20140410, end: 20140612
  4. WARFARIN [Suspect]
     Indication: DEEP VEIN THROMBOSIS
     Dosage: 5 MG DAILY.THE CASE REFERS TO A FEMALE BUT VERBATIN SAYS IT IS MALET 7.5 MG MONDAYS.
     Dates: start: 20140418, end: 20140512
  5. WARFARIN [Suspect]
     Indication: CEREBROVASCULAR ACCIDENT
     Dosage: 5 MG DAILY.THE CASE REFERS TO A FEMALE BUT VERBATIN SAYS IT IS MALET 7.5 MG MONDAYS.
     Dates: start: 20140418, end: 20140512
  6. WARFARIN [Suspect]
     Indication: DISEASE RECURRENCE
     Dosage: 5 MG DAILY.THE CASE REFERS TO A FEMALE BUT VERBATIN SAYS IT IS MALET 7.5 MG MONDAYS.
     Dates: start: 20140418, end: 20140512

REACTIONS (4)
  - Abdominal wall haematoma [None]
  - Haemoglobin decreased [None]
  - Blood creatinine decreased [None]
  - Anaemia [None]
